FAERS Safety Report 20156912 (Version 2)
Quarter: 2021Q4

REPORT INFORMATION
  Report Type: Report from Study
  Country: MX (occurrence: MX)
  Receive Date: 20211207
  Receipt Date: 20211210
  Transmission Date: 20220304
  Serious: Yes (Hospitalization, Other)
  Sender: FDA-Public Use
  Company Number: MX-NOVARTISPH-NVSC2021MX277985

PATIENT
  Age: 79 Year
  Sex: Female
  Weight: 43 kg

DRUGS (5)
  1. METFORMIN HYDROCHLORIDE\VILDAGLIPTIN [Suspect]
     Active Substance: METFORMIN HYDROCHLORIDE\VILDAGLIPTIN
     Indication: Diabetes mellitus
     Dosage: 1 DOSAGE FORM, BID (3 YEARS AGO)
     Route: 048
  2. AMLODIPINE [Suspect]
     Active Substance: AMLODIPINE BESYLATE
     Indication: Hypertension
     Dosage: 1 DOSAGE FORM, QD 25 YEARS AGO
     Route: 048
  3. LOSARTAN [Concomitant]
     Active Substance: LOSARTAN
     Indication: Hypertension
     Dosage: 1 DOSAGE FORM, QD (25 YEARS AGO APPROXIMATELY)
     Route: 048
  4. LEVOTHYROXINE [Concomitant]
     Active Substance: LEVOTHYROXINE
     Indication: Thyroid disorder
     Dosage: 0.25 DOSAGE FORM QD (100 MCG) 1O YEARS AGO APPROXIMATELY
     Route: 048
  5. LEVOTHYROXINE [Concomitant]
     Active Substance: LEVOTHYROXINE
     Dosage: 0.25 DOSAGE FORM QD (100 MCG) 1 AND A HALF YEAR AGO, QD
     Route: 048

REACTIONS (18)
  - Headache [Unknown]
  - Neurological decompensation [Unknown]
  - Weight decreased [Unknown]
  - Vomiting [Unknown]
  - Fall [Unknown]
  - Hip fracture [Unknown]
  - Intervertebral disc protrusion [Unknown]
  - Nerve injury [Unknown]
  - Rheumatoid arthritis [Unknown]
  - Insomnia [Unknown]
  - Hypoaesthesia [Unknown]
  - Hypoacusis [Not Recovered/Not Resolved]
  - Feeling abnormal [Not Recovered/Not Resolved]
  - Memory impairment [Unknown]
  - Pain [Unknown]
  - Asthenia [Unknown]
  - Body height decreased [Unknown]
  - Visual impairment [Unknown]

NARRATIVE: CASE EVENT DATE: 20201101
